FAERS Safety Report 15418176 (Version 1)
Quarter: 2018Q3

REPORT INFORMATION
  Report Type: Spontaneous
  Country: US (occurrence: US)
  Receive Date: 20180924
  Receipt Date: 20180924
  Transmission Date: 20181010
  Serious: No
  Sender: FDA-Public Use
  Company Number: US-JNJFOC-20180904696

PATIENT
  Sex: Male

DRUGS (1)
  1. XARELTO [Suspect]
     Active Substance: RIVAROXABAN
     Indication: PRODUCT USED FOR UNKNOWN INDICATION
     Route: 048
     Dates: start: 20180606, end: 20180619

REACTIONS (5)
  - Fear [Unknown]
  - Anxiety [Unknown]
  - Swollen tongue [Unknown]
  - Pruritus generalised [Unknown]
  - Rash pruritic [Unknown]

NARRATIVE: CASE EVENT DATE: 201806
